FAERS Safety Report 20716931 (Version 1)
Quarter: 2022Q2

REPORT INFORMATION
  Report Type: Spontaneous
  Country: US (occurrence: US)
  Receive Date: 20220416
  Receipt Date: 20220416
  Transmission Date: 20220721
  Serious: Yes (Other)
  Sender: FDA-Public Use
  Company Number: US-UNITED THERAPEUTICS-UNT-2022-003469

PATIENT
  Age: 63 Year
  Sex: Male
  Weight: 107.48 kg

DRUGS (10)
  1. TYVASO [Suspect]
     Active Substance: TREPROSTINIL
     Indication: Pulmonary arterial hypertension
     Dosage: UNK
     Dates: start: 20210520
  2. TYVASO [Suspect]
     Active Substance: TREPROSTINIL
     Dosage: 18-72 ?G, QID
  3. OFEV [Suspect]
     Active Substance: NINTEDANIB
     Indication: Idiopathic pulmonary fibrosis
     Dosage: 150 MG, BID
     Route: 048
     Dates: start: 20200313
  4. OFEV [Suspect]
     Active Substance: NINTEDANIB
     Dosage: 150 MG, BID
     Route: 048
  5. OFEV [Suspect]
     Active Substance: NINTEDANIB
     Dosage: 150 MG, BID
     Route: 048
  6. OFEV [Suspect]
     Active Substance: NINTEDANIB
     Dosage: 200 MG, QD (1 IN 1 DAY)
     Route: 048
     Dates: start: 20210519
  7. OFEV [Suspect]
     Active Substance: NINTEDANIB
     Dosage: 200 MG, QD
     Route: 048
  8. OFEV [Suspect]
     Active Substance: NINTEDANIB
     Dosage: 200 MG, QD
     Route: 048
  9. OFEV [Suspect]
     Active Substance: NINTEDANIB
     Dosage: 200 MG, QD
     Route: 048
  10. AMLODIPINE [Concomitant]
     Active Substance: AMLODIPINE BESYLATE
     Indication: Product used for unknown indication
     Dosage: UNK
     Route: 065

REACTIONS (6)
  - Diarrhoea haemorrhagic [Unknown]
  - Diarrhoea [Unknown]
  - Nausea [Unknown]
  - Hypersensitivity [Unknown]
  - Vomiting [Unknown]
  - Haemorrhoids [Unknown]

NARRATIVE: CASE EVENT DATE: 20210501
